FAERS Safety Report 5742074-1 (Version None)
Quarter: 2008Q2

REPORT INFORMATION
  Report Type: 
  Country: None (occurrence: None)
  Receive Date: 20080519
  Receipt Date: 20080508
  Transmission Date: 20081010
  Serious: Yes (Other)
  Sender: FDA-Public Use
  Company Number: JP-MERCK-0805USA02423

PATIENT
  Age: 42 Year

DRUGS (2)
  1. ZETIA [Suspect]
     Indication: HYPERCHOLESTEROLAEMIA
     Route: 048
     Dates: start: 20080501
  2. CLOFIBRATE [Concomitant]
     Route: 065

REACTIONS (1)
  - HEPATIC FUNCTION ABNORMAL [None]
